FAERS Safety Report 23994417 (Version 1)
Quarter: 2024Q2

REPORT INFORMATION
  Report Type: Spontaneous
  Country: US (occurrence: None)
  Receive Date: 20240618
  Receipt Date: 20240618
  Transmission Date: 20240716
  Serious: Yes (Death)
  Sender: FDA-Public Use
  Company Number: None

PATIENT
  Sex: Male

DRUGS (3)
  1. TALTZ [Suspect]
     Active Substance: IXEKIZUMAB
     Indication: Polyarthritis
     Dosage: 80MG EVERY 4 MONTHS SQ
     Route: 058
     Dates: start: 202402
  2. TALTZ SYR (1-PAK) [Concomitant]
  3. OTREXUP INJ (0.4ML) [Concomitant]

REACTIONS (1)
  - Death [None]
